FAERS Safety Report 5077136-8 (Version None)
Quarter: 2006Q3

REPORT INFORMATION
  Report Type: 
  Country: None (occurrence: None)
  Receive Date: 20060810
  Receipt Date: 20051219
  Transmission Date: 20061208
  Serious: No
  Sender: FDA-Public Use
  Company Number: US-GLAXOSMITHKLINE-A0586284A

PATIENT
  Age: 21 Year
  Sex: Male

DRUGS (1)
  1. PAXIL [Suspect]
     Indication: PANIC DISORDER
     Dosage: 30MG PER DAY
     Route: 048

REACTIONS (4)
  - ANGER [None]
  - ANXIETY [None]
  - FRUSTRATION [None]
  - HEADACHE [None]
